FAERS Safety Report 6380643-9 (Version None)
Quarter: 2009Q3

REPORT INFORMATION
  Report Type: 
  Country: None (occurrence: None)
  Receive Date: 20090924
  Receipt Date: 20090914
  Transmission Date: 20100115
  Serious: Yes (Hospitalization)
  Sender: FDA-Public Use
  Company Number: 2009FS0207

PATIENT
  Age: 77 Year
  Sex: Male

DRUGS (5)
  1. NITROFURANTOIN [Suspect]
     Indication: PROPHYLAXIS
     Dosage: 100MG, DAILY100MG, DAILY
     Dates: start: 20080901
  2. NITROFURANTOIN [Suspect]
     Indication: URINARY TRACT INFECTION
     Dosage: 100MG, DAILY100MG, DAILY
     Dates: start: 20080901
  3. NITROFURANTOIN [Suspect]
  4. NITROFURANTOIN [Suspect]
     Dosage: 100MG,DAILY,
     Dates: start: 20081013
  5. NITROFURANTOIN [Suspect]
     Dosage: 100MG,DAILY,
     Dates: start: 20081020

REACTIONS (11)
  - ABDOMINAL PAIN [None]
  - CENTRAL LINE INFECTION [None]
  - CHROMATURIA [None]
  - CULTURE POSITIVE [None]
  - CULTURE URINE POSITIVE [None]
  - ESCHERICHIA INFECTION [None]
  - NITRITE URINE PRESENT [None]
  - STENOTROPHOMONAS INFECTION [None]
  - SYSTEMIC INFLAMMATORY RESPONSE SYNDROME [None]
  - URINE LEUKOCYTE ESTERASE POSITIVE [None]
  - WHITE BLOOD CELLS URINE POSITIVE [None]
